FAERS Safety Report 5938510-8 (Version None)
Quarter: 2008Q4

REPORT INFORMATION
  Report Type: 
  Country: None (occurrence: None)
  Receive Date: 20081103
  Receipt Date: 20081029
  Transmission Date: 20090506
  Serious: Yes (Hospitalization)
  Sender: FDA-Public Use
  Company Number: US-ABBOTT-08P-163-0484879-00

PATIENT
  Sex: Male

DRUGS (3)
  1. NIASPAN [Suspect]
     Indication: DRUG USE FOR UNKNOWN INDICATION
  2. UNKNOWN MEDICATION [Suspect]
     Indication: DRUG USE FOR UNKNOWN INDICATION
  3. UNKNOWN MEDICATION [Suspect]

REACTIONS (1)
  - UNEVALUABLE EVENT [None]
